FAERS Safety Report 6745153-5 (Version None)
Quarter: 2010Q2

REPORT INFORMATION
  Report Type: 
  Country: None (occurrence: None)
  Receive Date: 20100526
  Receipt Date: 20100511
  Transmission Date: 20101027
  Serious: Yes (Hospitalization)
  Sender: FDA-Public Use
  Company Number: 8046400

PATIENT
  Sex: Female
  Weight: 53.2 kg

DRUGS (17)
  1. CERTOLIZUMAB PEGOL [Suspect]
     Indication: RHEUMATOID ARTHRITIS
     Dosage: 400 MG 1X/2 WEEKS SUBCUTANEOUS, 200 MG 1X/2 WEEKS SUBCUTANEOUS
     Route: 058
     Dates: start: 20090226, end: 20090325
  2. CERTOLIZUMAB PEGOL [Suspect]
     Indication: RHEUMATOID ARTHRITIS
     Dosage: 400 MG 1X/2 WEEKS SUBCUTANEOUS, 200 MG 1X/2 WEEKS SUBCUTANEOUS
     Route: 058
     Dates: start: 20090408, end: 20090428
  3. MEVACOR [Concomitant]
  4. ASPIRIN [Concomitant]
  5. CALCIUM CARBONATE [Concomitant]
  6. TENORMIN [Concomitant]
  7. GLUCOSAMINE [Concomitant]
  8. KLONOPIN [Concomitant]
  9. LORTAB [Concomitant]
  10. ZANAFLEX [Concomitant]
  11. TRANXENE [Concomitant]
  12. POTASSIUM CHLORIDE [Concomitant]
  13. PRILOSEC [Concomitant]
  14. VISTARIL [Concomitant]
  15. ZYBAN [Concomitant]
  16. ADDERALL [Concomitant]
  17. VANCOMYCIN [Concomitant]

REACTIONS (6)
  - ABSCESS LIMB [None]
  - ABSCESS SOFT TISSUE [None]
  - HAEMATOCRIT DECREASED [None]
  - HYPERKERATOSIS [None]
  - PLATELET COUNT DECREASED [None]
  - STAPHYLOCOCCAL INFECTION [None]
